FAERS Safety Report 16401522 (Version 2)
Quarter: 2019Q3

REPORT INFORMATION
  Report Type: Spontaneous
  Country: US (occurrence: US)
  Receive Date: 20190606
  Receipt Date: 20190904
  Transmission Date: 20191004
  Serious: No
  Sender: FDA-Public Use
  Company Number: US-PTC THERAPEUTICS, INC.-US-2019PTC000721

PATIENT
  Age: 11 Year
  Sex: Male

DRUGS (1)
  1. EMFLAZA [Suspect]
     Active Substance: DEFLAZACORT
     Indication: MUSCULAR DYSTROPHY
     Dosage: 18 MG, EVERY SATURDAY AND SUNDAY
     Route: 048

REACTIONS (8)
  - Behaviour disorder [Unknown]
  - Anxiety [Not Recovered/Not Resolved]
  - Defiant behaviour [Unknown]
  - Anger [Not Recovered/Not Resolved]
  - Agitation [Not Recovered/Not Resolved]
  - Off label use [Unknown]
  - Intentional self-injury [Unknown]
  - Influenza [Unknown]

NARRATIVE: CASE EVENT DATE: 201904
